FAERS Safety Report 6933915-0 (Version None)
Quarter: 2010Q3

REPORT INFORMATION
  Report Type: 
  Country: None (occurrence: None)
  Receive Date: 20100820
  Receipt Date: 20100813
  Transmission Date: 20110219
  Serious: Yes (Other)
  Sender: FDA-Public Use
  Company Number: IE-ROCHE-720922

PATIENT
  Age: 57 Year
  Sex: Female

DRUGS (3)
  1. BONIVA [Suspect]
     Indication: OSTEOPOROSIS
     Route: 048
     Dates: start: 20100610
  2. IDEOS [Concomitant]
  3. SPIRIVA [Concomitant]

REACTIONS (4)
  - BACK PAIN [None]
  - EYE SWELLING [None]
  - MYALGIA [None]
  - PRURITUS [None]
